FAERS Safety Report 7753707-2 (Version None)
Quarter: 2011Q3

REPORT INFORMATION
  Report Type: 
  Country: None (occurrence: None)
  Receive Date: 20110915
  Receipt Date: 20110915
  Transmission Date: 20111222
  Serious: Yes (Hospitalization)
  Sender: FDA-Public Use
  Company Number: None

PATIENT
  Age: 77 Year
  Sex: Male
  Weight: 91 kg

DRUGS (13)
  1. INSULIN GLARGINE [Concomitant]
  2. NITROGLYCERIN PATCH 0.4 MG/HR APPLY DAILY AS DIRECTED [Concomitant]
     Route: 061
  3. ENOXAPARIN [Concomitant]
     Indication: ANTICOAGULANT THERAPY
     Dosage: 100 MG
     Route: 058
  4. WARFARIN SODIUM [Suspect]
     Indication: AORTIC VALVE REPLACEMENT
     Dosage: UNKNOWN
     Route: 048
  5. WARFARIN SODIUM [Suspect]
     Indication: ANTICOAGULANT THERAPY
     Dosage: UNKNOWN
     Route: 048
  6. ASCORBIC ACID [Concomitant]
     Route: 048
  7. CHOLECALCIFEROL [Concomitant]
     Route: 048
  8. TAMSULOSIN HCL [Concomitant]
     Route: 048
  9. EPLERONONE [Concomitant]
     Route: 048
  10. ENALAPRIL MALEATE [Concomitant]
     Route: 048
  11. CALCIUM + VITAMIN D [Concomitant]
     Route: 048
  12. OMEPRAZOLE [Concomitant]
     Route: 048
  13. DOXAZOSIN MESYLATE [Concomitant]
     Route: 048

REACTIONS (3)
  - POST PROCEDURAL HAEMORRHAGE [None]
  - INTRA-ABDOMINAL HAEMATOMA [None]
  - INTERNATIONAL NORMALISED RATIO INCREASED [None]
